FAERS Safety Report 7575477-3 (Version None)
Quarter: 2011Q2

REPORT INFORMATION
  Report Type: 
  Country: None (occurrence: None)
  Receive Date: 20110627
  Receipt Date: 20110617
  Transmission Date: 20111010
  Serious: Yes (Hospitalization)
  Sender: FDA-Public Use
  Company Number: US-ASTRAZENECA-2011SE32986

PATIENT
  Age: 60 Year
  Sex: Male
  Weight: 174.6 kg

DRUGS (9)
  1. VIMOVO [Suspect]
     Route: 048
  2. OXYCODONE HCL [Concomitant]
     Route: 048
  3. LEXAPRO [Concomitant]
     Route: 048
  4. TAMSULOSIN HCL [Concomitant]
     Route: 048
  5. LISINOPRIL [Suspect]
     Route: 048
  6. TOPROL-XL [Concomitant]
     Route: 048
  7. OXYCODONE HCL [Concomitant]
     Route: 048
  8. LISINOPRIL [Suspect]
     Route: 048
  9. OXYCODONE HCL [Concomitant]
     Route: 048

REACTIONS (4)
  - RENAL FAILURE ACUTE [None]
  - HYPOTENSION [None]
  - ARTHRALGIA [None]
  - BACK PAIN [None]
